FAERS Safety Report 8437229-1 (Version None)
Quarter: 2012Q2

REPORT INFORMATION
  Report Type: 
  Country: None (occurrence: None)
  Receive Date: 20120614
  Receipt Date: 20120227
  Transmission Date: 20120825
  Serious: No
  Sender: FDA-Public Use
  Company Number: US-AMGEN-USASP2012004003

PATIENT
  Age: 65 Year
  Sex: Female
  Weight: 81 kg

DRUGS (4)
  1. PROLIA [Suspect]
     Indication: OSTEOPOROSIS POSTMENOPAUSAL
     Dosage: 60 MG, Q6MO
     Route: 058
     Dates: start: 20111005, end: 20111005
  2. PREDNISONE TAB [Concomitant]
     Dosage: 15 MG, TID
     Dates: start: 20110401
  3. ALPRAZOLAM [Concomitant]
     Dosage: 0.25 MG, TID
     Dates: start: 20101011
  4. IMURONG [Concomitant]
     Dosage: 50 MG, TID

REACTIONS (3)
  - ABASIA [None]
  - PAIN IN EXTREMITY [None]
  - PARAESTHESIA [None]
